FAERS Safety Report 25529565 (Version 1)
Quarter: 2025Q3

REPORT INFORMATION
  Report Type: Spontaneous
  Country: US (occurrence: None)
  Receive Date: 20250708
  Receipt Date: 20250708
  Transmission Date: 20251021
  Serious: Yes (Disabling)
  Sender: FDA-CTU
  Company Number: None

PATIENT
  Age: 29 Year
  Sex: Male
  Weight: 72 kg

DRUGS (3)
  1. CIPROFLOXACIN [Suspect]
     Active Substance: CIPROFLOXACIN
     Indication: Prostate infection
     Route: 048
     Dates: start: 20241114, end: 20241120
  2. XANAX [Concomitant]
     Active Substance: ALPRAZOLAM
  3. OMEPRAZOLE [Concomitant]
     Active Substance: OMEPRAZOLE

REACTIONS (9)
  - Muscular weakness [None]
  - Arthropathy [None]
  - Burning sensation [None]
  - Pain in extremity [None]
  - Arthralgia [None]
  - Dysstasia [None]
  - Toxicity to various agents [None]
  - Tendonitis [None]
  - Ligament disorder [None]

NARRATIVE: CASE EVENT DATE: 20241117
